FAERS Safety Report 9288408 (Version 2)
Quarter: 2017Q1

REPORT INFORMATION
  Report Type: Report from Study
  Country: EG (occurrence: EG)
  Receive Date: 20130514
  Receipt Date: 20170131
  Transmission Date: 20170429
  Serious: Yes (Other)
  Sender: FDA-Public Use
  Company Number: EG-ROCHE-1223643

PATIENT
  Age: 43 Year
  Sex: Female
  Weight: 95 kg

DRUGS (6)
  1. TRASTUZUMAB [Suspect]
     Active Substance: TRASTUZUMAB
     Indication: BREAST CANCER
     Dosage: LOADING DOSE
     Route: 041
     Dates: start: 20110521
  2. TRASTUZUMAB [Suspect]
     Active Substance: TRASTUZUMAB
     Dosage: REST OF DOSES?02/JUL/2011, 23/JUL/2011, 23/JUL/2011 AND 13/AUG/2011, 05/NOV/2011, 26/NOV/2011, 17/DE
     Route: 042
     Dates: end: 20120128
  3. DOCETAXEL. [Concomitant]
     Active Substance: DOCETAXEL
  4. EPIRUBICIN [Concomitant]
     Active Substance: EPIRUBICIN
     Route: 065
  5. 5-FU [Concomitant]
     Active Substance: FLUOROURACIL
  6. CYCLOPHOSPHAMIDE. [Concomitant]
     Active Substance: CYCLOPHOSPHAMIDE

REACTIONS (4)
  - Pneumonia [Recovered/Resolved]
  - Palpitations [Recovered/Resolved]
  - Dyspnoea [Recovered/Resolved]
  - Pulmonary mass [Not Recovered/Not Resolved]

NARRATIVE: CASE EVENT DATE: 20111001
